FAERS Safety Report 14579912 (Version 2)
Quarter: 2023Q1

REPORT INFORMATION
  Report Type: Report from Study
  Country: US (occurrence: None)
  Receive Date: 20180228
  Receipt Date: 20230321
  Transmission Date: 20230417
  Serious: Yes (Death, Hospitalization, Other)
  Sender: FDA-Public Use
  Company Number: US-ROCHE-2034481

PATIENT
  Age: 80 Year
  Sex: Male

DRUGS (13)
  1. BEVACIZUMAB [Suspect]
     Active Substance: BEVACIZUMAB
     Indication: Neoplasm
     Dosage: DATE OF LAST DOSE 22/NOV/2017, DATE OF STUDY : 30/NOV/2017
     Route: 042
     Dates: start: 20171101
  2. ATEZOLIZUMAB [Suspect]
     Active Substance: ATEZOLIZUMAB
     Indication: Neoplasm
     Dosage: DOSE GIVEN ON DAY 1 OF EACH 21 DAY CYCLE 1200 MG (AS PER PROTOCOL)?DATE OF LAST DOSE 22/NOV/2017, DA
     Route: 042
     Dates: start: 20171101
  3. OXYCODONE [Concomitant]
     Active Substance: OXYCODONE
     Indication: Abdominal pain
  4. NORCO [Concomitant]
     Active Substance: ACETAMINOPHEN\HYDROCODONE BITARTRATE
     Indication: Abdominal pain
     Dosage: TAKEN 2 TABS PRIOR TO BEING ADMITTED TO HOSPITAL.
  5. METOPROLOL [Concomitant]
     Active Substance: METOPROLOL
     Indication: Blood pressure measurement
  6. ASPIRIN [Concomitant]
     Active Substance: ASPIRIN
  7. BRILINTA [Concomitant]
     Active Substance: TICAGRELOR
  8. VITAMIN D3 [Concomitant]
     Active Substance: CHOLECALCIFEROL
  9. COENZYME Q10 [Concomitant]
     Active Substance: DIETARY SUPPLEMENT\UBIDECARENONE
  10. LEVOTHYROXINE [Concomitant]
     Active Substance: LEVOTHYROXINE
  11. METANX [Concomitant]
     Active Substance: LEVOMEFOLATE CALCIUM\METHYLCOBALAMIN\PYRIDOXAL PHOSPHATE ANHYDROUS
     Route: 048
  12. VYTORIN [Concomitant]
     Active Substance: EZETIMIBE\SIMVASTATIN
  13. ZOFRAN [Concomitant]
     Active Substance: ONDANSETRON HYDROCHLORIDE

REACTIONS (3)
  - Large intestine perforation [Fatal]
  - Nervous system disorder [Unknown]
  - Hypertension [Recovered/Resolved]

NARRATIVE: CASE EVENT DATE: 20171108
